FAERS Safety Report 14891824 (Version 3)
Quarter: 2018Q2

REPORT INFORMATION
  Report Type: Spontaneous
  Country: FR (occurrence: FR)
  Receive Date: 20180514
  Receipt Date: 20180525
  Transmission Date: 20180711
  Serious: Yes (Other)
  Sender: FDA-Public Use
  Company Number: FR-TEVA-2018-FR-892811

PATIENT
  Age: 59 Year
  Sex: Female
  Weight: 53 kg

DRUGS (4)
  1. AMOXICILLIN. [Suspect]
     Active Substance: AMOXICILLIN
     Route: 048
     Dates: start: 20180102, end: 20180102
  2. AMOXICILLIN. [Suspect]
     Active Substance: AMOXICILLIN
     Indication: HELICOBACTER INFECTION
     Route: 048
     Dates: start: 20180115, end: 20180115
  3. CLARITHROMYCIN. [Suspect]
     Active Substance: CLARITHROMYCIN
     Indication: HELICOBACTER INFECTION
     Route: 048
     Dates: start: 20180115, end: 20180115
  4. CLARITHROMYCIN. [Suspect]
     Active Substance: CLARITHROMYCIN
     Route: 048
     Dates: start: 20180102, end: 20180102

REACTIONS (3)
  - Malaise [Recovered/Resolved]
  - Erythema [Recovered/Resolved]
  - Chest discomfort [Recovered/Resolved]

NARRATIVE: CASE EVENT DATE: 20180102
